FAERS Safety Report 4895142-0 (Version None)
Quarter: 2006Q1

REPORT INFORMATION
  Report Type: 
  Country: None (occurrence: None)
  Receive Date: 20060130
  Receipt Date: 20060126
  Transmission Date: 20060701
  Serious: Yes (Life-Threatening, Hospitalization)
  Sender: FDA-Public Use
  Company Number: FR-JNJFOC-20060105588

PATIENT
  Sex: Female
  Weight: 77 kg

DRUGS (9)
  1. INFLIXIMAB [Suspect]
     Route: 042
  2. INFLIXIMAB [Suspect]
     Route: 042
  3. INFLIXIMAB [Suspect]
     Route: 042
  4. INFLIXIMAB [Suspect]
     Route: 042
  5. INFLIXIMAB [Suspect]
     Route: 042
  6. INFLIXIMAB [Suspect]
     Route: 042
  7. INFLIXIMAB [Suspect]
     Indication: CROHN'S DISEASE
     Route: 042
  8. AZATHIOPRINE [Concomitant]
     Indication: CROHN'S DISEASE
  9. LEVOTHYROX [Concomitant]
     Indication: HYPERTHYROIDISM

REACTIONS (1)
  - ACUTE MYELOID LEUKAEMIA [None]
